FAERS Safety Report 5518588-6 (Version None)
Quarter: 2007Q4

REPORT INFORMATION
  Report Type: 
  Country: None (occurrence: None)
  Receive Date: 20071115
  Receipt Date: 20071106
  Transmission Date: 20080405
  Serious: Yes (Life-Threatening, Hospitalization)
  Sender: FDA-Public Use
  Company Number: US-ROCHE-512738

PATIENT
  Age: 42 Year
  Sex: Female
  Weight: 69.4 kg

DRUGS (13)
  1. CAPECITABINE [Suspect]
     Dosage: TAKEN TWICE DAILY IN EQUALLY DIVIDED DOSES ON DAYS ONE TO EIGHT EVERY TWO-WEEK-CYCLE.
     Route: 048
     Dates: start: 20070814, end: 20070816
  2. BEVACIZUMAB [Suspect]
     Dosage: GIVEN ON DAY ONE EVERY TWO WEEKS.
     Route: 042
     Dates: start: 20070814, end: 20070816
  3. FLUOROURACIL [Suspect]
     Route: 065
     Dates: start: 20070829
  4. OXALIPLATIN [Suspect]
     Dosage: GIVEN ON DAY ONE EVERY TWO WEEKS. DOSAGE FORM REPORTED AS VIALS.
     Route: 042
     Dates: start: 20070814, end: 20070828
  5. OXALIPLATIN [Suspect]
     Route: 042
     Dates: start: 20070829
  6. FOLINIC ACID [Suspect]
     Route: 065
     Dates: start: 20070829
  7. REPLIVA 21/7 [Concomitant]
     Dosage: TRADE NAME REPORTED AS REPLIVA.
     Dates: start: 20070808
  8. COMPAZINE [Concomitant]
     Dates: start: 20070814, end: 20070816
  9. NORCO [Concomitant]
     Dosage: TDD REPORTED AS 10/225 MG.
     Dates: start: 20070703
  10. ARANESP [Concomitant]
     Dates: start: 20070814, end: 20070814
  11. ARANESP [Concomitant]
     Dates: start: 20070814
  12. INDOMETHACIN [Concomitant]
     Dates: start: 20070817, end: 20070827
  13. CELEXA [Concomitant]
     Dates: start: 20070827

REACTIONS (3)
  - CHEST PAIN [None]
  - PERICARDITIS [None]
  - VENTRICULAR TACHYCARDIA [None]
